FAERS Safety Report 9585904 (Version 1)
Quarter: 2013Q4

REPORT INFORMATION
  Report Type: Spontaneous
  Country: US (occurrence: None)
  Receive Date: 20131002
  Receipt Date: 20131002
  Transmission Date: 20140711
  Serious: Yes (Life-Threatening, Hospitalization)
  Sender: FDA-Public Use
  Company Number: None

PATIENT
  Age: 87 Year
  Sex: Female

DRUGS (10)
  1. LISINOPRIL [Suspect]
     Indication: HYPERTENSION
     Route: 048
  2. ASPIRIN 325MG [Concomitant]
  3. LIPITOR 20 MG [Concomitant]
  4. ZYPREXA 10MG [Concomitant]
  5. SEVELAMER CARBONATE 800 MG [Concomitant]
  6. SENSIPAR 30 MG [Concomitant]
  7. EPOGEN 7700 UNITS [Concomitant]
  8. VENOFER 50MG [Concomitant]
  9. FOSRENOL 500 MG [Concomitant]
  10. CLONIDINE 0.2MG [Concomitant]

REACTIONS (5)
  - Angioedema [None]
  - Acute respiratory failure [None]
  - Deep vein thrombosis [None]
  - Mental status changes [None]
  - Lung infiltration [None]
